FAERS Safety Report 25851584 (Version 1)
Quarter: 2025Q3

REPORT INFORMATION
  Report Type: Spontaneous
  Country: PK (occurrence: PK)
  Receive Date: 20250926
  Receipt Date: 20250926
  Transmission Date: 20251020
  Serious: Yes (Other)
  Sender: RANBAXY
  Company Number: PK-SUN PHARMACEUTICAL INDUSTRIES LTD-2025R1-528761

PATIENT
  Age: 18 Month
  Sex: Female

DRUGS (2)
  1. HYDROCORTISONE [Suspect]
     Active Substance: HYDROCORTISONE
     Indication: Adrenogenital syndrome
     Route: 065
  2. FLUDROCORTISONE [Suspect]
     Active Substance: FLUDROCORTISONE
     Indication: Adrenogenital syndrome
     Route: 065

REACTIONS (1)
  - Condition aggravated [Unknown]
